FAERS Safety Report 10590210 (Version 3)
Quarter: 2015Q1

REPORT INFORMATION
  Report Type: Spontaneous
  Country: US (occurrence: US)
  Receive Date: 20141118
  Receipt Date: 20150130
  Transmission Date: 20150720
  Serious: No
  Sender: FDA-Public Use
  Company Number: US-PFIZER INC-2014314992

PATIENT
  Age: 63 Year
  Sex: Female
  Weight: 58 kg

DRUGS (13)
  1. PREMARIN [Suspect]
     Active Substance: ESTROGENS, CONJUGATED
     Dosage: 0.5 G, 2X/WEEK
     Dates: start: 201411
  2. CITALOPRAM [Concomitant]
     Active Substance: CITALOPRAM HYDROBROMIDE
     Dosage: 40 MG, PILL 1X/DAY
     Route: 048
  3. VITAMIN D3 [Concomitant]
     Active Substance: CHOLECALCIFEROL
     Dosage: 2500 MG, DAILY
  4. MAGNESIUM OXIDE. [Concomitant]
     Active Substance: MAGNESIUM OXIDE
     Dosage: 400 MG,  1X/DAY
  5. CALCIUM MAGNESIUM CITRATE [Concomitant]
     Dosage: 5 TABLETS, DAILY
  6. PREMARIN [Suspect]
     Active Substance: ESTROGENS, CONJUGATED
     Indication: VULVOVAGINAL DRYNESS
     Dosage: 0.625 MG/G, UNK
     Dates: start: 201309, end: 201309
  7. GABAPENTIN. [Concomitant]
     Active Substance: GABAPENTIN
     Dosage: 300 MG,  DAILY
     Route: 048
  8. MULTIVITAMINS WITH MINERALS [Concomitant]
     Active Substance: MINERALS\VITAMINS
     Dosage: 1 TABLET, DAILY
     Route: 048
  9. METHYLSULFONYLMETHANE [Concomitant]
     Active Substance: DIMETHYL SULFONE
     Dosage: 2000 MG, DAILY
  10. FLAXSEED [Concomitant]
     Active Substance: FLAX SEED
     Dosage: 300 MG,  DAILY
  11. PREGNENOLONE [Concomitant]
     Active Substance: PREGNENOLONE
     Dosage: 5 MG, 1X/DAY
  12. CHROMIUM PICOLINATE [Concomitant]
     Active Substance: CHROMIUM PICOLINATE
  13. CRANBERRY. [Concomitant]
     Active Substance: CRANBERRY
     Dosage: 1000 MG,  1X/DAY

REACTIONS (2)
  - Insomnia [Recovered/Resolved]
  - Anxiety [Recovered/Resolved]

NARRATIVE: CASE EVENT DATE: 201309
